FAERS Safety Report 19824474 (Version 3)
Quarter: 2021Q4

REPORT INFORMATION
  Report Type: Report from Study
  Country: FR (occurrence: FR)
  Receive Date: 20210913
  Receipt Date: 20211008
  Transmission Date: 20220303
  Serious: Yes (Death, Hospitalization, Other)
  Sender: FDA-Public Use
  Company Number: FR-GILEAD-2021-0545655

PATIENT
  Age: 45 Year
  Sex: Female

DRUGS (1)
  1. BREXUCABTAGENE AUTOLEUCEL [Suspect]
     Active Substance: BREXUCABTAGENE AUTOLEUCEL
     Indication: Acute lymphocytic leukaemia
     Dosage: UNK
     Route: 042
     Dates: start: 20210817, end: 20210817

REACTIONS (10)
  - Sepsis [Fatal]
  - Splenic rupture [Unknown]
  - B-cell aplasia [Unknown]
  - Bacteraemia [Recovered/Resolved]
  - Cytokine release syndrome [Not Recovered/Not Resolved]
  - Cellulitis [Not Recovered/Not Resolved]
  - Pneumonia fungal [Not Recovered/Not Resolved]
  - Blood lactate dehydrogenase increased [Unknown]
  - Anxiety [Not Recovered/Not Resolved]
  - Lymphopenia [Not Recovered/Not Resolved]
